FAERS Safety Report 25664965 (Version 1)
Quarter: 2025Q3

REPORT INFORMATION
  Report Type: Spontaneous
  Country: US (occurrence: None)
  Receive Date: 20250809
  Receipt Date: 20250809
  Transmission Date: 20251021
  Serious: Yes (Hospitalization)
  Sender: FDA-CTU
  Company Number: None

PATIENT
  Age: 62 Year
  Sex: Male
  Weight: 123.8 kg

DRUGS (8)
  1. IRON DEXTRAN [Suspect]
     Active Substance: IRON DEXTRAN
     Route: 042
  2. buspirone 15mg tablet [Concomitant]
  3. citalopram 40mg tablet [Concomitant]
  4. metformin ER 500mg tablet [Concomitant]
  5. ASCORBIC ACID [Concomitant]
     Active Substance: ASCORBIC ACID
  6. calcium carbonate-cholecalciferol [Concomitant]
  7. FERROUS SULFATE [Concomitant]
     Active Substance: FERROUS SULFATE
  8. super B complex/c tablets [Concomitant]

REACTIONS (7)
  - Hypersensitivity [None]
  - Nausea [None]
  - Vomiting [None]
  - Chest pain [None]
  - Flushing [None]
  - Dyspnoea [None]
  - Back pain [None]

NARRATIVE: CASE EVENT DATE: 20250806
